FAERS Safety Report 8882071 (Version 2)
Quarter: 2012Q4

REPORT INFORMATION
  Report Type: 
  Country: US (occurrence: US)
  Receive Date: 20121102
  Receipt Date: 20121108
  Transmission Date: 20130627
  Serious: Yes (Other)
  Sender: FDA-Public Use
  Company Number: US-ABBOTT-12P-163-0999888-00

PATIENT
  Age: 83 None
  Sex: Male
  Weight: 104.42 kg

DRUGS (4)
  1. LUPRON DEPOT [Suspect]
     Indication: PROSTATE CANCER
     Dates: start: 20121022
  2. LUPRON DEPOT [Suspect]
     Dates: end: 201210
  3. LUPRON DEPOT [Suspect]
     Dates: start: 1998
  4. LUPRON DEPOT [Suspect]

REACTIONS (8)
  - Bladder cancer [Not Recovered/Not Resolved]
  - Urinary retention [Unknown]
  - Dysuria [Unknown]
  - Urine flow decreased [Unknown]
  - Bladder neoplasm [Unknown]
  - Pollakiuria [Unknown]
  - Micturition urgency [Unknown]
  - Expired drug administered [Unknown]
